FAERS Safety Report 17039969 (Version 2)
Quarter: 2019Q4

REPORT INFORMATION
  Report Type: Report from Study
  Country: None (occurrence: CA)
  Receive Date: 20191116
  Receipt Date: 20191121
  Transmission Date: 20200122
  Serious: Yes (Hospitalization, Other)
  Sender: FDA-Public Use
  Company Number: CA-ABBVIE-19K-028-2996912-00

PATIENT
  Age: 14 Year
  Sex: Female

DRUGS (1)
  1. HUMIRA [Suspect]
     Active Substance: ADALIMUMAB
     Indication: CROHN^S DISEASE
     Route: 058
     Dates: start: 20171019, end: 20191108

REACTIONS (7)
  - Ileostomy [Unknown]
  - Fistula [Unknown]
  - Gastrointestinal pain [Recovered/Resolved]
  - Postoperative wound complication [Recovered/Resolved]
  - Gastrointestinal stoma output decreased [Recovered/Resolved]
  - Intestinal operation [Unknown]
  - Stricturoplasty [Recovered/Resolved]

NARRATIVE: CASE EVENT DATE: 2019
